FAERS Safety Report 4799287-5 (Version None)
Quarter: 2005Q4

REPORT INFORMATION
  Report Type: 
  Country: None (occurrence: None)
  Receive Date: 20051013
  Receipt Date: 20050926
  Transmission Date: 20060501
  Serious: Yes (Death)
  Sender: FDA-Public Use
  Company Number: 2005-DE-03938GD

PATIENT
  Age: 41 Year
  Sex: 0

DRUGS (2)
  1. MORPHINE [Suspect]
     Dosage: PO
     Route: 048
  2. FENTANYL [Suspect]
     Dosage: IV
     Route: 042

REACTIONS (10)
  - ALCOHOL POISONING [None]
  - APNOEA [None]
  - CYANOSIS [None]
  - DRUG ABUSER [None]
  - DRUG TOXICITY [None]
  - HEPATITIS CHRONIC ACTIVE [None]
  - INTENTIONAL DRUG MISUSE [None]
  - LYMPHADENOPATHY [None]
  - PETECHIAE [None]
  - PULMONARY OEDEMA [None]
